FAERS Safety Report 7417518-X (Version None)
Quarter: 2011Q2

REPORT INFORMATION
  Report Type: 
  Country: None (occurrence: None)
  Receive Date: 20110415
  Receipt Date: 20101015
  Transmission Date: 20111010
  Serious: Yes (Hospitalization)
  Sender: FDA-Public Use
  Company Number: US-BAYER-201022988NA

PATIENT
  Age: 19 Year
  Sex: Female
  Weight: 77.098 kg

DRUGS (5)
  1. FLAGYL [Concomitant]
     Dosage: UNK
     Dates: start: 20090901
  2. PROTONIX [Concomitant]
     Indication: EPIGASTRIC DISCOMFORT
     Dosage: UNK
     Dates: start: 20091029
  3. YAZ [Suspect]
     Indication: CONTRACEPTION
     Dosage: UNK UNK, QD
     Route: 048
     Dates: start: 20090101, end: 20091001
  4. LEVSIN [Concomitant]
  5. CYMBALTA [Concomitant]

REACTIONS (8)
  - EPIGASTRIC DISCOMFORT [None]
  - HEPATOBILIARY SCAN ABNORMAL [None]
  - CHOLECYSTITIS CHRONIC [None]
  - HIATUS HERNIA [None]
  - CHOLESTEROSIS [None]
  - PAIN [None]
  - VOMITING [None]
  - OCCULT BLOOD POSITIVE [None]
